FAERS Safety Report 6550256-4 (Version None)
Quarter: 2010Q1

REPORT INFORMATION
  Report Type: 
  Country: None (occurrence: None)
  Receive Date: 20100125
  Receipt Date: 20100113
  Transmission Date: 20100710
  Serious: Yes (Other)
  Sender: FDA-Public Use
  Company Number: US-PFIZER INC-2010006779

PATIENT
  Sex: Female

DRUGS (8)
  1. CHANTIX [Suspect]
     Indication: SMOKING CESSATION THERAPY
  2. SIMVASTATIN [Concomitant]
  3. PLAVIX [Concomitant]
  4. IPRATROPIUM BROMIDE AND ALBUTEROL SULFATE [Concomitant]
     Indication: DYSPNOEA
     Dosage: FREQUENCY: 4X/DAY AS NEEDED,
  5. THEO-24 [Concomitant]
     Dosage: 300 MG, 2X/DAY
  6. LEVAQUIN [Concomitant]
     Dosage: FREQUENCY: 3X/DAY,
     Dates: start: 20100107
  7. METRONIDAZOLE [Concomitant]
     Dosage: FREQUENCY: 3X/DAY,
     Dates: start: 20100107
  8. LEVOTHYROXINE SODIUM [Concomitant]

REACTIONS (5)
  - ANGER [None]
  - HOSTILITY [None]
  - IRRITABILITY [None]
  - MOOD SWINGS [None]
  - WEIGHT INCREASED [None]
